FAERS Safety Report 7386317-X (Version None)
Quarter: 2011Q1

REPORT INFORMATION
  Report Type: 
  Country: None (occurrence: None)
  Receive Date: 20110331
  Receipt Date: 20110317
  Transmission Date: 20110831
  Serious: Yes (Hospitalization)
  Sender: FDA-Public Use
  Company Number: PHHO2011DE04187

PATIENT
  Sex: Female
  Weight: 66 kg

DRUGS (6)
  1. EMBOLEX [Concomitant]
  2. CALCIUM [Concomitant]
  3. ZOLEDRONIC ACID [Suspect]
     Indication: BREAST CANCER
     Dosage: 4 MG, UNK
     Route: 042
     Dates: start: 20080801
  4. TAMOXIFEN CITRATE [Concomitant]
  5. NOVALGIN [Concomitant]
  6. VITAMIN D [Concomitant]

REACTIONS (3)
  - SUBCUTANEOUS ABSCESS [None]
  - NECROSIS [None]
  - ABSCESS DRAINAGE [None]
